FAERS Safety Report 5332304-2 (Version None)
Quarter: 2007Q2

REPORT INFORMATION
  Report Type: 
  Country: None (occurrence: None)
  Receive Date: 20070523
  Receipt Date: 20070511
  Transmission Date: 20071010
  Serious: Yes (Hospitalization, Other)
  Sender: FDA-Public Use
  Company Number: JP-ROCHE-491704

PATIENT
  Age: 64 Year
  Sex: Male

DRUGS (17)
  1. DENOSINE IV [Suspect]
     Indication: CYTOMEGALOVIRUS OESOPHAGITIS
     Dosage: FORM REPORTED AS INFUSION.
     Route: 041
     Dates: start: 20050601, end: 20050622
  2. VALIXA [Suspect]
     Indication: CYTOMEGALOVIRUS OESOPHAGITIS
     Route: 048
     Dates: start: 20050530, end: 20050531
  3. VALIXA [Suspect]
     Route: 048
     Dates: start: 20050623, end: 20050707
  4. ZERIT [Concomitant]
     Indication: HIV INFECTION
     Route: 048
     Dates: start: 20050613
  5. BAKTAR [Concomitant]
     Route: 048
     Dates: start: 20050325
  6. EPIVIR [Concomitant]
     Indication: HIV INFECTION
     Route: 048
     Dates: start: 20050613
  7. KALETRA [Concomitant]
     Indication: HIV INFECTION
     Route: 048
     Dates: start: 20050613
  8. FILGRASTIM [Concomitant]
     Dosage: FILGRASTIM WAS ADMINISTRERED ON 04 JULY 2005 AND ON 07 JULY 2005.
     Route: 058
     Dates: start: 20050704, end: 20050707
  9. DOXORUBICIN HYDROCHLORIDE [Concomitant]
     Dates: start: 20050723
  10. ONDANSETRON HCL [Concomitant]
     Dates: start: 20050723
  11. ZITHROMAC [Concomitant]
     Indication: KAPOSI'S SARCOMA
     Route: 048
     Dates: start: 20050418, end: 20060123
  12. ACECOL [Concomitant]
     Route: 048
  13. ASPIRIN [Concomitant]
     Route: 048
  14. PARIET [Concomitant]
     Dosage: FIRST THERAPY: FROM UNKNOWN TO 21 JULY 2005. SECOND THERAPY: FROM 22 JULY 2005 TO 31 MARCH 2006. BO+
     Route: 048
     Dates: end: 20060331
  15. SUCRALFATE [Concomitant]
     Dosage: FIRST THERAPY: FROM UNKNOWN TO 21 JULY 2005. SECOND THERAPY: FROM 22 JULY 2005 TO 31 MARCH 2006. BO+
     Route: 048
     Dates: end: 20060331
  16. MAALOX FAST BLOCKER [Concomitant]
     Dosage: FIRST THERAPY: FROM UNKNOWN TO 21 JULY 2005. SECOND THERAPY: FROM 22 JULY 2005 TO 31 MARCH 2006. BO+
     Route: 048
     Dates: end: 20060331
  17. DEPAS [Concomitant]
     Route: 048
     Dates: end: 20050721

REACTIONS (3)
  - HYPERTRIGLYCERIDAEMIA [None]
  - KAPOSI'S SARCOMA [None]
  - WHITE BLOOD CELL COUNT DECREASED [None]
